FAERS Safety Report 6274308-1 (Version None)
Quarter: 2009Q3

REPORT INFORMATION
  Report Type: 
  Country: None (occurrence: None)
  Receive Date: 20090720
  Receipt Date: 20090710
  Transmission Date: 20100115
  Serious: Yes (Hospitalization)
  Sender: FDA-Public Use
  Company Number: FR-ABBOTT-09P-056-0501470-00

PATIENT
  Sex: Female
  Weight: 49 kg

DRUGS (6)
  1. HUMIRA [Suspect]
     Indication: PSORIASIS
     Route: 058
     Dates: start: 20060227, end: 20081119
  2. OCFENONE [Concomitant]
     Indication: ERYTHEMA NODOSUM
     Dosage: 2 GEL
     Dates: start: 20080104, end: 20080114
  3. DAIVOBET [Concomitant]
     Indication: PSORIASIS
     Dosage: 1 APPLICATION
     Dates: start: 20080104, end: 20080611
  4. DIPROLENE [Concomitant]
     Indication: PSORIASIS
     Dosage: 1 APPLICATION
     Dates: start: 20080321
  5. OFFEUNE [Concomitant]
     Indication: ERYTHEMA
     Dosage: 2 GEL
     Dates: start: 20071027, end: 20071101
  6. BACCIER DERM [Concomitant]
     Indication: PSORIASIS
     Dosage: 1 APPLICATION
     Dates: start: 20080910

REACTIONS (1)
  - EMPHYSEMA [None]
